FAERS Safety Report 17171922 (Version 1)
Quarter: 2019Q4

REPORT INFORMATION
  Report Type: Spontaneous
  Country: US (occurrence: US)
  Receive Date: 20191218
  Receipt Date: 20191218
  Transmission Date: 20200122
  Serious: No
  Sender: FDA-Public Use
  Company Number: US-SA-2019SA346459

PATIENT
  Age: 65 Year
  Sex: Male

DRUGS (2)
  1. LANTUS SOLOSTAR [Suspect]
     Active Substance: INSULIN GLARGINE
     Indication: TYPE 2 DIABETES MELLITUS
     Dosage: 8 U, BID
     Route: 065
     Dates: start: 20191211
  2. NOVOLOG [Concomitant]
     Active Substance: INSULIN ASPART
     Dosage: 9 UNITS BASED ON A SLIDING SCALE AND HIS BLOOD SUGARS
     Route: 065

REACTIONS (1)
  - Inappropriate schedule of product administration [Unknown]
